FAERS Safety Report 8220266-X (Version None)
Quarter: 2012Q1

REPORT INFORMATION
  Report Type: 
  Country: None (occurrence: None)
  Receive Date: 20120320
  Receipt Date: 20120312
  Transmission Date: 20120608
  Serious: No
  Sender: FDA-Public Use
  Company Number: US-PFIZER INC-2012065965

PATIENT
  Sex: Female
  Weight: 92.063 kg

DRUGS (5)
  1. LISINOPRIL [Suspect]
     Indication: HYPERTENSION
     Dosage: UNK
     Dates: end: 20110101
  2. MELOXICAM [Concomitant]
     Indication: DISLOCATION OF VERTEBRA
     Dosage: 15 MG, UNK
  3. NORVASC [Suspect]
     Dosage: UNK
     Dates: end: 20120101
  4. ACETAMINOPHEN AND HYDROCODONE BITARTRATE [Concomitant]
     Indication: PAIN
     Dosage: UNK
  5. LISINOPRIL [Suspect]
     Dosage: UNK
     Dates: start: 20120301

REACTIONS (4)
  - THROAT IRRITATION [None]
  - COUGH [None]
  - DRUG ADMINISTRATION ERROR [None]
  - HEADACHE [None]
